FAERS Safety Report 8575030-9 (Version None)
Quarter: 2012Q2

REPORT INFORMATION
  Report Type: 
  Country: None (occurrence: None)
  Receive Date: 20120423
  Receipt Date: 20100722
  Transmission Date: 20120825
  Serious: Yes (Hospitalization)
  Sender: FDA-Public Use
  Company Number: PHEH2007US07339

PATIENT
  Sex: Female

DRUGS (2)
  1. EXJADE [Suspect]
     Indication: SICKLE CELL ANAEMIA
     Dosage: 2000 MG, QD, ORAL, 3125 MG, ORAL
     Route: 048
     Dates: start: 20070209
  2. EXJADE [Suspect]
     Indication: IRON OVERLOAD
     Dosage: 2000 MG, QD, ORAL, 3125 MG, ORAL
     Route: 048
     Dates: start: 20070209

REACTIONS (1)
  - SICKLE CELL ANAEMIA WITH CRISIS [None]
